FAERS Safety Report 6863967-8 (Version None)
Quarter: 2010Q3

REPORT INFORMATION
  Report Type: 
  Country: None (occurrence: None)
  Receive Date: 20100721
  Receipt Date: 20080430
  Transmission Date: 20110219
  Serious: No
  Sender: FDA-Public Use
  Company Number: US-PFIZER INC-2008022760

PATIENT
  Sex: Male
  Weight: 85 kg

DRUGS (7)
  1. CHANTIX [Suspect]
     Indication: SMOKING CESSATION THERAPY
     Dates: start: 20080307
  2. ACETYLSALICYLIC ACID [Concomitant]
  3. LISINOPRIL [Concomitant]
     Indication: HYPERTENSION
  4. COREG [Concomitant]
  5. VYTORIN [Concomitant]
     Indication: BLOOD CHOLESTEROL INCREASED
  6. NIACIN [Concomitant]
  7. XANAX [Concomitant]
     Indication: SLEEP DISORDER

REACTIONS (4)
  - ABDOMINAL PAIN UPPER [None]
  - FATIGUE [None]
  - NAUSEA [None]
  - SEDATION [None]
